FAERS Safety Report 7794429-1 (Version None)
Quarter: 2011Q4

REPORT INFORMATION
  Report Type: 
  Country: None (occurrence: None)
  Receive Date: 20111004
  Receipt Date: 20111004
  Transmission Date: 20120403
  Serious: No
  Sender: FDA-Public Use
  Company Number: None

PATIENT
  Age: 42 Year
  Sex: Female
  Weight: 59.42 kg

DRUGS (1)
  1. LO LOESTRIN FE [Suspect]
     Indication: OVARIAN CYST
     Dosage: 24 PACK
     Route: 048
     Dates: start: 20110826, end: 20110921

REACTIONS (6)
  - PALPITATIONS [None]
  - ANXIETY [None]
  - MANIA [None]
  - INSOMNIA [None]
  - INCREASED APPETITE [None]
  - NERVOUS SYSTEM DISORDER [None]
